FAERS Safety Report 5088611-4 (Version None)
Quarter: 2006Q3

REPORT INFORMATION
  Report Type: 
  Country: None (occurrence: None)
  Receive Date: 20060822
  Receipt Date: 20060804
  Transmission Date: 20061208
  Serious: Yes (Other)
  Sender: FDA-Public Use
  Company Number: ES200608000105

PATIENT
  Sex: Male

DRUGS (2)
  1. CIALIS [Suspect]
     Indication: ERECTILE DYSFUNCTION
     Dosage: 20 MG, AS NEEDEDS, ORAL
     Route: 048
     Dates: end: 20060712
  2. TROMALYT (ACETYLSALICYLIC ACID) [Concomitant]

REACTIONS (2)
  - AMNESIA [None]
  - WRONG TECHNIQUE IN DRUG USAGE PROCESS [None]
